FAERS Safety Report 9857831 (Version 1)
Quarter: 2014Q1

REPORT INFORMATION
  Report Type: Report from Study
  Country: GB (occurrence: GB)
  Receive Date: 20140131
  Receipt Date: 20140131
  Transmission Date: 20141002
  Serious: Yes (Other)
  Sender: FDA-Public Use
  Company Number: GB-ROCHE-1340554

PATIENT
  Age: 61 Year
  Sex: Female

DRUGS (1)
  1. VEMURAFENIB [Suspect]
     Indication: MALIGNANT MELANOMA
     Route: 048
     Dates: start: 20121226, end: 20140111

REACTIONS (2)
  - Eye haemorrhage [Not Recovered/Not Resolved]
  - Retinal vein occlusion [Not Recovered/Not Resolved]
